FAERS Safety Report 5709215-3 (Version None)
Quarter: 2008Q2

REPORT INFORMATION
  Report Type: 
  Country: None (occurrence: None)
  Receive Date: 20080418
  Receipt Date: 20080411
  Transmission Date: 20081010
  Serious: Yes (Other)
  Sender: FDA-Public Use
  Company Number: CA-ASTRAZENECA-2008UW07591

PATIENT
  Sex: Male

DRUGS (1)
  1. DIPRIVAN [Suspect]
     Route: 042

REACTIONS (3)
  - EYE INJURY [None]
  - EYE IRRITATION [None]
  - FOREIGN BODY IN EYE [None]
